FAERS Safety Report 6465417-2 (Version None)
Quarter: 2009Q4

REPORT INFORMATION
  Report Type: 
  Country: None (occurrence: None)
  Receive Date: 20091201
  Receipt Date: 20090629
  Transmission Date: 20100525
  Serious: No
  Sender: FDA-Public Use
  Company Number: US-AMGEN-KDL305321

PATIENT
  Sex: Female

DRUGS (2)
  1. ENBREL [Suspect]
     Indication: PSORIATIC ARTHROPATHY
     Route: 058
     Dates: start: 20080801
  2. METHOTREXATE [Concomitant]
     Route: 048

REACTIONS (3)
  - COUGH [None]
  - PARANASAL SINUS DISCOMFORT [None]
  - SINUS HEADACHE [None]
